FAERS Safety Report 10551217 (Version 3)
Quarter: 2014Q4

REPORT INFORMATION
  Report Type: Spontaneous
  Country: GB (occurrence: None)
  Receive Date: 20141027
  Receipt Date: 20141210
  Transmission Date: 20150529
  Serious: Yes (Death)
  Sender: FDA-Public Use
  Company Number: GB-H14001-14-01196

PATIENT
  Age: 48 Year
  Sex: Male

DRUGS (5)
  1. ALFUZOSIN (ALFUZOSIN) [Concomitant]
     Active Substance: ALFUZOSIN
  2. SERTRALINE [Suspect]
     Active Substance: SERTRALINE HYDROCHLORIDE
  3. CIPROFLOXACIN (CIPROFLOXACIN) [Suspect]
     Active Substance: CIPROFLOXACIN
     Indication: PROSTATITIS
  4. LORAZEPAM. [Suspect]
     Active Substance: LORAZEPAM
  5. CITALOPRAM (CITALOPRAM) [Suspect]
     Active Substance: CITALOPRAM HYDROBROMIDE
     Indication: DEPRESSION

REACTIONS (13)
  - Completed suicide [None]
  - Asphyxia [None]
  - Malaise [None]
  - Crying [None]
  - Feelings of worthlessness [None]
  - Depression [None]
  - Fall [None]
  - Dry mouth [None]
  - Emotional disorder [None]
  - Anxiety [None]
  - Constipation [None]
  - Impaired work ability [None]
  - Feeling guilty [None]

NARRATIVE: CASE EVENT DATE: 20130906
